FAERS Safety Report 12647600 (Version 1)
Quarter: 2016Q3

REPORT INFORMATION
  Report Type: Spontaneous
  Country: US (occurrence: None)
  Receive Date: 20160811
  Receipt Date: 20160811
  Transmission Date: 20161109
  Serious: Yes (Hospitalization)
  Sender: FDA-Public Use
  Company Number: None

PATIENT
  Age: 66 Year
  Sex: Female
  Weight: 42 kg

DRUGS (2)
  1. CARBOPLATIN. [Suspect]
     Active Substance: CARBOPLATIN
     Dates: end: 20160331
  2. TAXOL [Suspect]
     Active Substance: PACLITAXEL
     Dates: end: 20160331

REACTIONS (2)
  - Pneumonitis [None]
  - Pneumonia [None]

NARRATIVE: CASE EVENT DATE: 20160728
